FAERS Safety Report 23582717 (Version 1)
Quarter: 2024Q1

REPORT INFORMATION
  Report Type: Spontaneous
  Country: US (occurrence: US)
  Receive Date: 20240229
  Receipt Date: 20240229
  Transmission Date: 20240409
  Serious: Yes (Other)
  Sender: FDA-Public Use
  Company Number: US-STRIDES ARCOLAB LIMITED-2023SP001902

PATIENT
  Age: 49 Year
  Sex: Male

DRUGS (4)
  1. LORATADINE [Suspect]
     Active Substance: LORATADINE
     Indication: Urticaria
     Dosage: 20 MILLIGRAM, UNKNOWN
     Route: 065
  2. EXCEDRIN [Concomitant]
     Active Substance: ACETAMINOPHEN\ASPIRIN\CAFFEINE
     Indication: Migraine
     Dosage: UNK
     Route: 065
     Dates: start: 2017
  3. ACETAMINOPHEN [Concomitant]
     Active Substance: ACETAMINOPHEN
     Indication: Drug provocation test
     Dosage: 250 MILLIGRAM; HE TOLERATED FIRST DOSE OF 250MG PARACETAMOL WELL IN ORAL CHALLENGE
     Route: 048
  4. ACETAMINOPHEN [Concomitant]
     Active Substance: ACETAMINOPHEN
     Dosage: 250 MILLIGRAM;  RECEIVED SECOND DOSE OF 250 MG AND DEVELOPED URTICARIA.
     Route: 048

REACTIONS (1)
  - Drug ineffective for unapproved indication [Unknown]
